FAERS Safety Report 12505871 (Version 1)
Quarter: 2016Q2

REPORT INFORMATION
  Report Type: Spontaneous
  Country: IT (occurrence: IT)
  Receive Date: 20160628
  Receipt Date: 20160628
  Transmission Date: 20160815
  Serious: Yes (Other)
  Sender: FDA-Public Use
  Company Number: IT-ABBVIE-16P-083-1629003-00

PATIENT
  Age: 44 Year
  Sex: Male

DRUGS (6)
  1. VIEKIRAX [Suspect]
     Active Substance: OMBITASVIR\PARITAPREVIR\RITONAVIR
     Indication: HEPATITIS C
     Route: 048
     Dates: start: 20150730, end: 20160114
  2. EXVIERA [Suspect]
     Active Substance: DASABUVIR
     Indication: HEPATITIS C
     Dosage: DAILY
     Route: 048
     Dates: start: 20150730, end: 20160114
  3. RAMIPRIL. [Concomitant]
     Active Substance: RAMIPRIL
     Indication: HYPERTENSION
     Route: 048
     Dates: start: 20140715
  4. LATTULOSIO [Concomitant]
     Indication: HEPATITIS C
     Route: 048
     Dates: start: 20140715
  5. COPEGUS [Concomitant]
     Active Substance: RIBAVIRIN
     Indication: HYPERTENSION
     Dosage: 1,2 GRAM/DAY
     Route: 048
     Dates: start: 20150730, end: 20160114
  6. INDERAL [Concomitant]
     Active Substance: PROPRANOLOL HYDROCHLORIDE
     Indication: HYPERTENSION
     Route: 048
     Dates: start: 20140715

REACTIONS (3)
  - Alcohol poisoning [Unknown]
  - Drug ineffective [Unknown]
  - Hepatitis C [Not Recovered/Not Resolved]

NARRATIVE: CASE EVENT DATE: 201602
